FAERS Safety Report 10003675 (Version 1)
Quarter: 2014Q1

REPORT INFORMATION
  Report Type: Spontaneous
  Country: US (occurrence: US)
  Receive Date: 20140312
  Receipt Date: 20140312
  Transmission Date: 20141002
  Serious: No
  Sender: FDA-Public Use
  Company Number: US-009507513-1403USA003114

PATIENT
  Age: 22 Year
  Sex: Female
  Weight: 90.25 kg

DRUGS (3)
  1. NEXPLANON [Suspect]
     Indication: CONTRACEPTION
     Dosage: 1 ROD /3 YEARS, INSERT LEFT ARM
     Route: 059
     Dates: start: 20140225
  2. METRONIDAZOLE [Concomitant]
     Dosage: UNK
     Route: 048
  3. SLIMQUICK [Concomitant]
     Dosage: TWICE A DAY, PILLS
     Route: 048

REACTIONS (2)
  - Implant site pruritus [Unknown]
  - Implant site erythema [Unknown]
